FAERS Safety Report 5320796-4 (Version None)
Quarter: 2007Q2

REPORT INFORMATION
  Report Type: 
  Country: None (occurrence: None)
  Receive Date: 20070502
  Receipt Date: 20070426
  Transmission Date: 20071010
  Serious: Yes (Death)
  Sender: FDA-Public Use
  Company Number: 2006SS000045

PATIENT
  Age: 31 Year
  Sex: Male

DRUGS (2)
  1. MYOBLOC [Suspect]
     Indication: TORTICOLLIS
     Dosage: SEE IMAGE
     Route: 030
     Dates: start: 20060111, end: 20060111
  2. MYOBLOC [Suspect]
     Indication: TORTICOLLIS
     Dosage: SEE IMAGE
     Route: 030
     Dates: start: 20060315, end: 20060315

REACTIONS (5)
  - ANOXIC ENCEPHALOPATHY [None]
  - ARRHYTHMIA [None]
  - PNEUMONIA ASPIRATION [None]
  - THERAPEUTIC RESPONSE DECREASED [None]
  - UPPER RESPIRATORY TRACT INFECTION [None]
